FAERS Safety Report 4632649-5 (Version None)
Quarter: 2005Q2

REPORT INFORMATION
  Report Type: 
  Country: None (occurrence: None)
  Receive Date: 20050331
  Receipt Date: 20040901
  Transmission Date: 20051028
  Serious: Yes (Other)
  Sender: FDA-Public Use
  Company Number: 200414278BCC

PATIENT
  Sex: Female

DRUGS (1)
  1. ALEVE [Suspect]
     Dosage: 220 MG, ONCE, ORAL
     Route: 048

REACTIONS (1)
  - SWELLING FACE [None]
